FAERS Safety Report 5850993-0 (Version None)
Quarter: 2008Q3

REPORT INFORMATION
  Report Type: 
  Country: None (occurrence: None)
  Receive Date: 20080820
  Receipt Date: 20080808
  Transmission Date: 20090109
  Serious: Yes (Other)
  Sender: FDA-Public Use
  Company Number: US-ROCHE-580334

PATIENT
  Sex: Male

DRUGS (2)
  1. PEG-INTERFERON A-2A (RO 25-8310) [Suspect]
     Indication: HEPATITIS C
     Dosage: FORMLATION: PRE-FILLED SYRINGE
     Route: 065
     Dates: start: 20080305, end: 20080725
  2. RIBAVIRIN [Suspect]
     Indication: HEPATITIS C
     Route: 065
     Dates: start: 20080305, end: 20080801

REACTIONS (10)
  - APHONIA [None]
  - DYSPNOEA [None]
  - EAR INFECTION [None]
  - HEARING IMPAIRED [None]
  - OROPHARYNGEAL PAIN [None]
  - PARALYSIS [None]
  - STOMATITIS [None]
  - THROAT IRRITATION [None]
  - VOCAL CORD DISORDER [None]
  - VOCAL CORD PARALYSIS [None]
